FAERS Safety Report 18257841 (Version 1)
Quarter: 2020Q3

REPORT INFORMATION
  Report Type: Spontaneous
  Country: CN (occurrence: CN)
  Receive Date: 20200911
  Receipt Date: 20200911
  Transmission Date: 20201103
  Serious: Yes (Life-Threatening, Hospitalization, Other)
  Sender: FDA-Public Use
  Company Number: CN-ASTRAZENECA-2020SF16115

PATIENT
  Age: 64 Year
  Sex: Male
  Weight: 105 kg

DRUGS (1)
  1. IMFINZI [Suspect]
     Active Substance: DURVALUMAB
     Dosage: 2 CYCLES ; LAST TREATMENT DATE WAS 16?JUN?2020; LAST CYCLE DOSE 1000MG/CYCLE, INJECTION WAS 500MG...
     Route: 042
     Dates: start: 20200527

REACTIONS (3)
  - Hepatic infection [Unknown]
  - Malignant neoplasm progression [Unknown]
  - Pneumonia [Unknown]
